FAERS Safety Report 10572968 (Version 1)
Quarter: 2014Q4

REPORT INFORMATION
  Report Type: Spontaneous
  Country: US (occurrence: US)
  Receive Date: 20141110
  Receipt Date: 20141110
  Transmission Date: 20150529
  Serious: No
  Sender: FDA-Public Use
  Company Number: US-TEVA-490862USA

PATIENT
  Sex: Female

DRUGS (2)
  1. PHENTERMINE [Suspect]
     Active Substance: PHENTERMINE
  2. PHENTERMINE [Suspect]
     Active Substance: PHENTERMINE

REACTIONS (3)
  - Drug ineffective [Unknown]
  - Constipation [Unknown]
  - Nausea [Unknown]
